FAERS Safety Report 19424675 (Version 3)
Quarter: 2025Q1

REPORT INFORMATION
  Report Type: Spontaneous
  Country: US (occurrence: US)
  Receive Date: 20210616
  Receipt Date: 20250114
  Transmission Date: 20250409
  Serious: No
  Sender: SK LIFE SCIENCE
  Company Number: US-SK LIFE SCIENCE, INC-SKPVG-2021-000189

PATIENT

DRUGS (11)
  1. XCOPRI [Suspect]
     Active Substance: CENOBAMATE
     Indication: Seizure
     Route: 048
     Dates: start: 201812
  2. XCOPRI [Suspect]
     Active Substance: CENOBAMATE
     Route: 048
     Dates: start: 202012
  3. XCOPRI [Suspect]
     Active Substance: CENOBAMATE
     Route: 048
  4. XCOPRI [Suspect]
     Active Substance: CENOBAMATE
     Route: 048
  5. XCOPRI [Suspect]
     Active Substance: CENOBAMATE
     Route: 048
  6. XCOPRI [Suspect]
     Active Substance: CENOBAMATE
     Dosage: 100 MILLIGRAM, QD
     Route: 048
     Dates: start: 202102
  7. XCOPRI [Suspect]
     Active Substance: CENOBAMATE
     Dosage: 150 MILLIGRAM, QD
     Route: 048
     Dates: end: 20210504
  8. XCOPRI [Suspect]
     Active Substance: CENOBAMATE
     Route: 048
  9. KLONOPIN [Suspect]
     Active Substance: CLONAZEPAM
     Indication: Product used for unknown indication
     Route: 065
  10. BRIVIACT [Concomitant]
     Active Substance: BRIVARACETAM
     Indication: Product used for unknown indication
     Route: 065
  11. VIMPAT [Concomitant]
     Active Substance: LACOSAMIDE
     Indication: Product used for unknown indication
     Route: 065

REACTIONS (9)
  - Fall [Not Recovered/Not Resolved]
  - Drug intolerance [Not Recovered/Not Resolved]
  - Movement disorder [Not Recovered/Not Resolved]
  - Drug dose titration not performed [Unknown]
  - Product dose omission issue [Recovered/Resolved]
  - Seizure [Recovered/Resolved]
  - Stress [Unknown]
  - Seizure [Unknown]
  - Bradyphrenia [Unknown]

NARRATIVE: CASE EVENT DATE: 20201201
